FAERS Safety Report 5391312-6 (Version None)
Quarter: 2007Q3

REPORT INFORMATION
  Report Type: 
  Country: None (occurrence: None)
  Receive Date: 20070719
  Receipt Date: 20070713
  Transmission Date: 20080115
  Serious: Yes (Other)
  Sender: FDA-Public Use
  Company Number: A0664890A

PATIENT
  Age: 64 Year
  Sex: Female
  Weight: 57 kg

DRUGS (7)
  1. SERETIDE [Suspect]
     Indication: ASTHMA
     Route: 055
     Dates: start: 20070621
  2. TALERC [Concomitant]
     Dates: start: 20070601, end: 20070601
  3. LOSARTAN POTASSIUM [Concomitant]
     Dates: start: 20061001
  4. DILTIAZEM [Concomitant]
     Dates: start: 20061001
  5. BROMAZEPAM [Concomitant]
     Dates: start: 19970101
  6. SPIRONOLACTONE [Concomitant]
     Dates: start: 20061001
  7. GLUCOFORMIN [Concomitant]
     Dates: start: 20020101

REACTIONS (5)
  - DYSPHONIA [None]
  - HYPOGLYCAEMIA [None]
  - PRURITUS [None]
  - RASH [None]
  - TREMOR [None]
